FAERS Safety Report 5989599-1 (Version None)
Quarter: 2008Q4

REPORT INFORMATION
  Report Type: 
  Country: None (occurrence: None)
  Receive Date: 20081208
  Receipt Date: 20081121
  Transmission Date: 20090506
  Serious: Yes (Hospitalization, Disabling, Other)
  Sender: FDA-Public Use
  Company Number: 2008-04232

PATIENT
  Age: 81 Year
  Sex: Male
  Weight: 60 kg

DRUGS (2)
  1. VELCADE [Suspect]
     Indication: MULTIPLE MYELOMA
     Dates: start: 20080605
  2. DEXAMETHASONE [Concomitant]

REACTIONS (4)
  - NEURALGIA [None]
  - NEUROPATHY PERIPHERAL [None]
  - PARANEOPLASTIC SYNDROME [None]
  - PARESIS [None]
